FAERS Safety Report 7508528-2 (Version None)
Quarter: 2011Q2

REPORT INFORMATION
  Report Type: 
  Country: None (occurrence: None)
  Receive Date: 20110527
  Receipt Date: 20110524
  Transmission Date: 20111010
  Serious: Yes (Death, Hospitalization)
  Sender: FDA-Public Use
  Company Number: FR-ELI_LILLY_AND_COMPANY-FR201105006566

PATIENT
  Sex: Male

DRUGS (8)
  1. UMULINE [Suspect]
     Dosage: UNK
     Route: 058
     Dates: start: 20110101, end: 20110207
  2. LOVENOX [Concomitant]
     Dosage: UNK
     Route: 058
     Dates: start: 20110101, end: 20110206
  3. OXACILLIN [Concomitant]
     Dosage: UNK
     Route: 042
     Dates: start: 20110124, end: 20110209
  4. LOVENOX [Concomitant]
     Dosage: UNK
     Route: 058
  5. FLAGYL [Concomitant]
     Indication: PNEUMONIA
     Dosage: UNK
     Route: 048
     Dates: start: 20110126, end: 20110202
  6. FENTANYL [Concomitant]
  7. MIDAZOLAM HCL [Concomitant]
  8. FLAGYL [Concomitant]
     Dosage: UNK
     Route: 048
     Dates: start: 20110210

REACTIONS (3)
  - CARDIOVASCULAR DISORDER [None]
  - COLITIS [None]
  - ACUTE GENERALISED EXANTHEMATOUS PUSTULOSIS [None]
